FAERS Safety Report 23289981 (Version 2)
Quarter: 2023Q4

REPORT INFORMATION
  Report Type: Report from Study
  Country: CA (occurrence: CA)
  Receive Date: 20231212
  Receipt Date: 20231222
  Transmission Date: 20240110
  Serious: No
  Sender: FDA-Public Use
  Company Number: CA-ABBVIE-5507113

PATIENT
  Sex: Female

DRUGS (4)
  1. SKYRIZI [Suspect]
     Active Substance: RISANKIZUMAB-RZAA
     Indication: Crohn^s disease
     Dosage: FIRST ADMIN DATE: 2023?FREQUENCY TEXT: WEEK 12 AND EVERY 8 WEEKS
     Route: 058
     Dates: start: 2023
  2. SKYRIZI [Suspect]
     Active Substance: RISANKIZUMAB-RZAA
     Indication: Crohn^s disease
     Dosage: TIME INTERVAL: TOTAL: LAST ADMIN DATE 2023
     Route: 042
     Dates: start: 20230919, end: 2023
  3. SKYRIZI [Suspect]
     Active Substance: RISANKIZUMAB-RZAA
     Indication: Crohn^s disease
     Dosage: TIME INTERVAL: TOTAL: WEEK 4?FIRST ADMIN DATE 2023
     Route: 042
     Dates: start: 2023, end: 202310
  4. SKYRIZI [Suspect]
     Active Substance: RISANKIZUMAB-RZAA
     Indication: Crohn^s disease
     Dosage: TIME INTERVAL: TOTAL: WEEK 8?LAST ADMIN DATE NOV 2023
     Route: 042
     Dates: start: 202311

REACTIONS (3)
  - Intra-uterine contraceptive device removal [Unknown]
  - Localised infection [Recovered/Resolved]
  - Contraceptive implant [Unknown]

NARRATIVE: CASE EVENT DATE: 20230101
